FAERS Safety Report 6369404-4 (Version None)
Quarter: 2009Q3

REPORT INFORMATION
  Report Type: 
  Country: None (occurrence: None)
  Receive Date: 20090917
  Receipt Date: 20090910
  Transmission Date: 20100115
  Serious: Yes (Death, Hospitalization)
  Sender: FDA-Public Use
  Company Number: 2008AL003785

PATIENT
  Age: 93 Year
  Sex: Female

DRUGS (14)
  1. DIGOXIN [Suspect]
     Dosage: 0.25MG DAILY PO
     Route: 048
     Dates: start: 20080629
  2. ACTONEL [Concomitant]
  3. LEVOXYL [Concomitant]
  4. PREDNISONE TAB [Concomitant]
  5. METHOTREXATE [Concomitant]
  6. LEVOTHROID [Concomitant]
  7. NEO/POLY/DEXAMET [Concomitant]
  8. HYDROCODONE BITARTRATE AND ACETAMINOPHEN [Concomitant]
  9. FOLIC ACID [Concomitant]
  10. LEVOTHYROXINE SODIUM [Concomitant]
  11. GLYCOLAX [Concomitant]
  12. FUROSEMIDE [Concomitant]
  13. LEVAQUIN [Concomitant]
  14. NITROGLYCERIN [Concomitant]

REACTIONS (4)
  - ATRIAL FIBRILLATION [None]
  - CARDIAC FAILURE CONGESTIVE [None]
  - CARDIOACTIVE DRUG LEVEL INCREASED [None]
  - THERAPEUTIC AGENT TOXICITY [None]
